FAERS Safety Report 4807909-5 (Version None)
Quarter: 2005Q4

REPORT INFORMATION
  Report Type: 
  Country: None (occurrence: None)
  Receive Date: 20051024
  Receipt Date: 20050721
  Transmission Date: 20060501
  Serious: Yes (Hospitalization)
  Sender: FDA-Public Use
  Company Number: US-MERCK-0507USA03318

PATIENT
  Age: 76 Year
  Sex: Female

DRUGS (7)
  1. VIOXX [Suspect]
     Indication: ARTHRITIS
     Route: 048
     Dates: start: 20000101, end: 20000101
  2. VIOXX [Suspect]
     Route: 048
  3. PROZAC [Concomitant]
     Route: 065
  4. PRAVACHOL [Concomitant]
     Route: 065
  5. PREMARIN [Concomitant]
     Route: 065
  6. KLONOPIN [Concomitant]
     Route: 065
  7. ALLEGRA [Concomitant]
     Route: 065

REACTIONS (1)
  - MENINGITIS [None]
